FAERS Safety Report 7737254-X (Version None)
Quarter: 2011Q3

REPORT INFORMATION
  Report Type: 
  Country: None (occurrence: None)
  Receive Date: 20110908
  Receipt Date: 20110901
  Transmission Date: 20111222
  Serious: No
  Sender: FDA-Public Use
  Company Number: US-BRACCO-006693

PATIENT
  Sex: Female

DRUGS (1)
  1. CARDIOGEN-82 [Suspect]
     Indication: POSITRON EMISSION TOMOGRAM
     Dates: start: 20110101, end: 20110101

REACTIONS (1)
  - RADIATION EXPOSURE [None]
